FAERS Safety Report 14780242 (Version 2)
Quarter: 2018Q3

REPORT INFORMATION
  Report Type: Spontaneous
  Country: US (occurrence: US)
  Receive Date: 20180419
  Receipt Date: 20180913
  Transmission Date: 20181010
  Serious: Yes (Other)
  Sender: FDA-Public Use
  Company Number: US-ASTRAZENECA-2018SE47176

PATIENT
  Age: 717 Month
  Sex: Female
  Weight: 114.3 kg

DRUGS (46)
  1. PROTONIX [Suspect]
     Active Substance: PANTOPRAZOLE SODIUM
     Indication: GASTROOESOPHAGEAL REFLUX DISEASE
     Route: 065
     Dates: start: 20111023
  2. VITAMIN D2 [Concomitant]
     Active Substance: ERGOCALCIFEROL
     Indication: RICKETS
     Route: 065
     Dates: start: 2008, end: 201805
  3. GEMFIBROZIL. [Concomitant]
     Active Substance: GEMFIBROZIL
     Indication: PAIN
     Route: 065
     Dates: start: 2006
  4. METHOTREXATE. [Concomitant]
     Active Substance: METHOTREXATE
     Indication: PAIN
     Route: 065
     Dates: start: 2006, end: 2010
  5. HYDROCHLOROTHIAZIDE. [Concomitant]
     Active Substance: HYDROCHLOROTHIAZIDE
     Indication: PAIN
     Route: 065
     Dates: start: 2012, end: 2014
  6. LANTUS SOLOSTAR [Concomitant]
     Active Substance: INSULIN GLARGINE
     Indication: PAIN
     Route: 065
     Dates: start: 2016
  7. COLCHICINE. [Concomitant]
     Active Substance: COLCHICINE
     Indication: PAIN
     Route: 065
     Dates: start: 2017
  8. ALLOPURINOL. [Concomitant]
     Active Substance: ALLOPURINOL
     Indication: PAIN
     Route: 065
     Dates: start: 2017
  9. ASPIRIN. [Concomitant]
     Active Substance: ASPIRIN
     Indication: MYOCARDIAL INFARCTION
     Route: 065
     Dates: start: 2011
  10. ADVIL [Concomitant]
     Active Substance: IBUPROFEN
     Indication: PAIN
     Dosage: GENERIC
     Route: 065
     Dates: start: 2011
  11. ZANTAC [Concomitant]
     Active Substance: RANITIDINE HYDROCHLORIDE
     Indication: PAIN
     Dosage: 75 OTC
     Route: 065
     Dates: start: 2017, end: 2018
  12. LIPITOR [Concomitant]
     Active Substance: ATORVASTATIN CALCIUM
     Indication: PAIN
     Route: 065
     Dates: start: 2006
  13. DIOVAN HCT [Concomitant]
     Active Substance: HYDROCHLOROTHIAZIDE\VALSARTAN
     Indication: PAIN
     Route: 065
     Dates: start: 2006, end: 2013
  14. INDAPAMIDE. [Concomitant]
     Active Substance: INDAPAMIDE
     Indication: PAIN
     Route: 065
     Dates: start: 2006, end: 2008
  15. GAVISCON [Concomitant]
     Active Substance: ALUMINUM HYDROXIDE\MAGNESIUM CARBONATE
     Indication: PAIN
     Route: 065
     Dates: start: 2004, end: 2018
  16. METFORMIN [Concomitant]
     Active Substance: METFORMIN HYDROCHLORIDE
     Indication: PAIN
     Route: 065
     Dates: start: 2006, end: 2014
  17. GLIMEPIRIDE. [Concomitant]
     Active Substance: GLIMEPIRIDE
     Indication: PAIN
     Route: 065
     Dates: start: 2006, end: 2017
  18. CIPROFLOXACIN. [Concomitant]
     Active Substance: CIPROFLOXACIN
     Indication: PAIN
     Route: 065
     Dates: start: 2006, end: 2017
  19. NEXIUM [Suspect]
     Active Substance: ESOMEPRAZOLE MAGNESIUM
     Indication: GASTROOESOPHAGEAL REFLUX DISEASE
     Route: 048
     Dates: start: 2004
  20. ADVIL [Concomitant]
     Active Substance: IBUPROFEN
     Indication: PAIN
     Route: 065
     Dates: start: 2011
  21. LYRICA [Concomitant]
     Active Substance: PREGABALIN
     Indication: PAIN
     Route: 065
     Dates: start: 2007
  22. VICTOZA [Concomitant]
     Active Substance: LIRAGLUTIDE
     Indication: PAIN
     Route: 065
     Dates: start: 2011
  23. GAVISCON [Concomitant]
     Active Substance: ALUMINUM HYDROXIDE\MAGNESIUM CARBONATE
     Indication: PAIN
     Route: 065
     Dates: start: 2004, end: 2018
  24. BYETTA [Concomitant]
     Active Substance: EXENATIDE
     Indication: PAIN
     Route: 065
     Dates: start: 2007, end: 2014
  25. LEVOTHYROXINE. [Concomitant]
     Active Substance: LEVOTHYROXINE
     Indication: PAIN
     Route: 065
     Dates: start: 2017
  26. BENZONATATE. [Concomitant]
     Active Substance: BENZONATATE
     Indication: PAIN
     Route: 065
     Dates: start: 2015, end: 201801
  27. NEXIUM [Suspect]
     Active Substance: ESOMEPRAZOLE MAGNESIUM
     Indication: GASTROOESOPHAGEAL REFLUX DISEASE
     Route: 048
     Dates: start: 20140630
  28. CEPHALEXIN. [Concomitant]
     Active Substance: CEPHALEXIN
     Indication: PAIN
     Route: 065
     Dates: start: 2015
  29. NEXIUM [Suspect]
     Active Substance: ESOMEPRAZOLE MAGNESIUM
     Indication: GASTROOESOPHAGEAL REFLUX DISEASE
     Route: 048
     Dates: start: 20140208
  30. NEXIUM [Suspect]
     Active Substance: ESOMEPRAZOLE MAGNESIUM
     Indication: GASTROOESOPHAGEAL REFLUX DISEASE
     Dosage: GENERIC
     Route: 065
     Dates: start: 201512
  31. NEXIUM [Suspect]
     Active Substance: ESOMEPRAZOLE MAGNESIUM
     Indication: GASTROOESOPHAGEAL REFLUX DISEASE
     Route: 048
     Dates: start: 20060502
  32. FOLIC ACID. [Concomitant]
     Active Substance: FOLIC ACID
     Indication: ANAEMIA
     Route: 065
     Dates: start: 2006, end: 2014
  33. ZANTAC [Concomitant]
     Active Substance: RANITIDINE HYDROCHLORIDE
     Indication: PAIN
     Dosage: 150 OTC
     Route: 065
     Dates: start: 2017, end: 2018
  34. ATORVASTATIN [Concomitant]
     Active Substance: ATORVASTATIN
     Indication: PAIN
     Route: 065
     Dates: start: 2014
  35. AZITHROMYCIN ANHYDROUS. [Concomitant]
     Active Substance: AZITHROMYCIN ANHYDROUS
     Indication: PAIN
     Route: 065
     Dates: start: 2013, end: 2017
  36. HYDROCODONE [Concomitant]
     Active Substance: HYDROCODONE
     Indication: PAIN
     Route: 065
     Dates: start: 2006, end: 2017
  37. SYNTHROID [Concomitant]
     Active Substance: LEVOTHYROXINE SODIUM
     Indication: PAIN
     Route: 065
     Dates: start: 2006
  38. JANUVIA [Concomitant]
     Active Substance: SITAGLIPTIN PHOSPHATE
     Indication: PAIN
     Route: 065
     Dates: start: 2007, end: 2008
  39. FERROUS SULFATE. [Concomitant]
     Active Substance: FERROUS SULFATE
     Indication: PAIN
     Route: 065
     Dates: start: 2014
  40. LOSARTAN. [Concomitant]
     Active Substance: LOSARTAN
     Indication: PAIN
     Route: 065
     Dates: start: 2018
  41. GLIPIZIDE. [Concomitant]
     Active Substance: GLIPIZIDE
     Indication: PAIN
     Route: 065
     Dates: start: 2006, end: 2017
  42. PROTONIX [Suspect]
     Active Substance: PANTOPRAZOLE SODIUM
     Indication: GASTROOESOPHAGEAL REFLUX DISEASE
     Dosage: GENERIC
     Route: 065
     Dates: start: 20111024, end: 20111026
  43. CHOLESTYRAMINE. [Concomitant]
     Active Substance: CHOLESTYRAMINE
     Indication: PAIN
     Route: 065
     Dates: start: 2006
  44. HUMIRA [Concomitant]
     Active Substance: ADALIMUMAB
     Indication: PAIN
     Route: 065
     Dates: start: 2006, end: 2013
  45. PREDNISONE. [Concomitant]
     Active Substance: PREDNISONE
     Indication: PAIN
     Route: 065
     Dates: start: 2008
  46. AMOXICILLIN. [Concomitant]
     Active Substance: AMOXICILLIN
     Indication: PAIN
     Route: 065
     Dates: start: 2006, end: 2017

REACTIONS (2)
  - Nephrogenic anaemia [Not Recovered/Not Resolved]
  - Chronic kidney disease [Not Recovered/Not Resolved]

NARRATIVE: CASE EVENT DATE: 201110
